FAERS Safety Report 5110148-4 (Version None)
Quarter: 2006Q3

REPORT INFORMATION
  Report Type: 
  Country: None (occurrence: None)
  Receive Date: 20060918
  Receipt Date: 20060904
  Transmission Date: 20061208
  Serious: Yes (Other)
  Sender: FDA-Public Use
  Company Number: 2006AP000685

PATIENT
  Age: 60 Year
  Sex: Female

DRUGS (3)
  1. RANITIDINE HYDROCHLORIDE [Suspect]
     Indication: REFLUX GASTRITIS
     Dosage: 300 MG; TAB; PO; QD
     Route: 048
     Dates: start: 20060405, end: 20060409
  2. BENDROFLUAZIDE (BENDROFLUMETHIAZIDE) [Concomitant]
  3. PAROXETINE HCL [Concomitant]

REACTIONS (2)
  - ANASTOMOTIC ULCER [None]
  - POST PROCEDURAL COMPLICATION [None]
